FAERS Safety Report 24724871 (Version 9)
Quarter: 2025Q4

REPORT INFORMATION
  Report Type: Report from Study
  Country: US (occurrence: US)
  Receive Date: 20241212
  Receipt Date: 20251204
  Transmission Date: 20260117
  Serious: Yes (Hospitalization, Other)
  Sender: INSMED
  Company Number: US-INSMED, INC.-2024-03123-US

PATIENT
  Sex: Male

DRUGS (4)
  1. ARIKAYCE [Suspect]
     Active Substance: AMIKACIN
     Indication: Mycobacterium avium complex infection
     Dosage: 590 MILLIGRAM, QD
     Route: 055
     Dates: start: 202407, end: 20250820
  2. ARIKAYCE [Suspect]
     Active Substance: AMIKACIN
     Dosage: UNK, QD
     Route: 055
     Dates: start: 20250911
  3. ETHAMBUTOL [Concomitant]
     Active Substance: ETHAMBUTOL HYDROCHLORIDE
     Indication: Mycobacterium avium complex infection
     Dosage: UNK, TIW
     Route: 065
  4. AZITHROMYCIN [Concomitant]
     Active Substance: AZITHROMYCIN
     Indication: Mycobacterium avium complex infection
     Dosage: UNK, TIW
     Route: 065

REACTIONS (17)
  - Oxygen therapy [Unknown]
  - Swelling [Unknown]
  - Cardiac failure congestive [Not Recovered/Not Resolved]
  - Pulmonary oedema [Unknown]
  - Renal disorder [Not Recovered/Not Resolved]
  - Condition aggravated [Unknown]
  - Abdominal discomfort [Unknown]
  - Dyspnoea [Unknown]
  - Dysphonia [Unknown]
  - Malaise [Not Recovered/Not Resolved]
  - Dysgeusia [Unknown]
  - Cough [Unknown]
  - Diarrhoea [Unknown]
  - Haemoptysis [Unknown]
  - Therapy interrupted [Unknown]
  - Product dose omission issue [Unknown]
  - Drug ineffective [Unknown]

NARRATIVE: CASE EVENT DATE: 20240101
